FAERS Safety Report 5057845-7 (Version None)
Quarter: 2006Q3

REPORT INFORMATION
  Report Type: 
  Country: None (occurrence: None)
  Receive Date: 20060721
  Receipt Date: 20060314
  Transmission Date: 20061208
  Serious: No
  Sender: FDA-Public Use
  Company Number: US-GLAXOSMITHKLINE-A0597529A

PATIENT
  Age: 55 Year
  Sex: Female

DRUGS (5)
  1. AVANDIA [Suspect]
     Indication: DIABETES MELLITUS NON-INSULIN-DEPENDENT
     Dosage: 4MG PER DAY
     Route: 048
     Dates: start: 20060307
  2. LIGAPLEX II [Suspect]
     Dosage: 2TAB THREE TIMES PER DAY
     Route: 048
     Dates: start: 20060313
  3. VASOTEC [Concomitant]
  4. NIASPAN [Concomitant]
  5. ASPIRIN [Concomitant]

REACTIONS (1)
  - DYSGEUSIA [None]
